FAERS Safety Report 5384800-X (Version None)
Quarter: 2007Q3

REPORT INFORMATION
  Report Type: 
  Country: None (occurrence: None)
  Receive Date: 20070711
  Receipt Date: 20070703
  Transmission Date: 20080115
  Serious: Yes (Other)
  Sender: FDA-Public Use
  Company Number: FR-PFIZER INC-2007056021

PATIENT
  Age: 56 Year
  Sex: Male

DRUGS (4)
  1. ATORVASTATIN CALCIUM [Suspect]
  2. FUROSEMIDE [Concomitant]
  3. BISOPROLOL FUMARATE [Concomitant]
  4. IRBESARTAN [Concomitant]

REACTIONS (4)
  - BACK PAIN [None]
  - MUSCLE ATROPHY [None]
  - MUSCULAR WEAKNESS [None]
  - MYALGIA [None]
